FAERS Safety Report 8585033-6 (Version None)
Quarter: 2012Q3

REPORT INFORMATION
  Report Type: 
  Country: None (occurrence: None)
  Receive Date: 20120810
  Receipt Date: 20120802
  Transmission Date: 20120928
  Serious: Yes (Hospitalization)
  Sender: FDA-Public Use
  Company Number: US-US-EMD SERONO, INC.-7152219

PATIENT
  Sex: Male

DRUGS (1)
  1. REBIF [Suspect]
     Indication: PRODUCT USED FOR UNKNOWN INDICATION
     Route: 058
     Dates: start: 20060101

REACTIONS (8)
  - OXYGEN SATURATION DECREASED [None]
  - HEART RATE INCREASED [None]
  - SEPSIS [None]
  - PNEUMONIA [None]
  - URINARY TRACT INFECTION [None]
  - CHOKING [None]
  - ASTHENIA [None]
  - UPPER RESPIRATORY TRACT INFECTION [None]
